FAERS Safety Report 5125660-1 (Version None)
Quarter: 2006Q4

REPORT INFORMATION
  Report Type: 
  Country: None (occurrence: None)
  Receive Date: 20061012
  Receipt Date: 20060823
  Transmission Date: 20070319
  Serious: Yes (Other)
  Sender: FDA-Public Use
  Company Number: PHMT2006CA01705

PATIENT
  Age: 69 Year
  Sex: Female
  Weight: 58.5 kg

DRUGS (2)
  1. DIOVAN [Suspect]
     Indication: HYPERTENSION
  2. SYNTHROID [Concomitant]
     Dosage: 0.1 MG

REACTIONS (4)
  - BIOPSY SKIN ABNORMAL [None]
  - DERMATITIS BULLOUS [None]
  - LICHENOID KERATOSIS [None]
  - PEMPHIGOID [None]
